FAERS Safety Report 8374801-1 (Version None)
Quarter: 2012Q2

REPORT INFORMATION
  Report Type: 
  Country: None (occurrence: None)
  Receive Date: 20120521
  Receipt Date: 20120509
  Transmission Date: 20120825
  Serious: Yes (Life-Threatening, Hospitalization)
  Sender: FDA-Public Use
  Company Number: AU-JNJFOC-20120306066

PATIENT
  Sex: Female
  Weight: 89 kg

DRUGS (6)
  1. AZULFIDINE [Concomitant]
     Indication: PSORIATIC ARTHROPATHY
     Dates: start: 19991027
  2. MELOXICAM [Concomitant]
     Indication: OSTEOARTHRITIS
  3. REMICADE [Suspect]
     Indication: PSORIATIC ARTHROPATHY
     Route: 042
     Dates: start: 20100204
  4. REMICADE [Suspect]
     Route: 042
     Dates: start: 20110201, end: 20110201
  5. ACETAMINOPHEN [Concomitant]
     Indication: OSTEOARTHRITIS
  6. REMICADE [Suspect]
     Route: 042
     Dates: start: 20100101

REACTIONS (7)
  - DYSPNOEA [None]
  - VOMITING [None]
  - BACK PAIN [None]
  - NAUSEA [None]
  - INFUSION RELATED REACTION [None]
  - HEART RATE INCREASED [None]
  - HYPERTENSION [None]
